FAERS Safety Report 20596215 (Version 3)
Quarter: 2023Q2

REPORT INFORMATION
  Report Type: Spontaneous
  Country: US (occurrence: US)
  Receive Date: 20220315
  Receipt Date: 20230406
  Transmission Date: 20230721
  Serious: No
  Sender: FDA-Public Use
  Company Number: US-ORGANON-O2203USA001194

PATIENT
  Age: 32 Year
  Sex: Female
  Weight: 100.68 kg

DRUGS (6)
  1. NEXPLANON [Suspect]
     Active Substance: ETONOGESTREL
     Indication: Contraception
     Dosage: 1 ROD (68 MILLIGRAM) LEFT ARM
     Route: 059
     Dates: start: 20211008, end: 20220208
  2. NEXPLANON [Suspect]
     Active Substance: ETONOGESTREL
     Indication: Contraception
     Dosage: 1 IMPLANT
     Route: 059
     Dates: start: 20220726, end: 20230113
  3. OMEPRAZOLE [Concomitant]
     Active Substance: OMEPRAZOLE
  4. CLONIDINE [Concomitant]
     Active Substance: CLONIDINE
  5. DULOXETINE [Concomitant]
     Active Substance: DULOXETINE
  6. BUSPIRONE [Concomitant]
     Active Substance: BUSPIRONE HYDROCHLORIDE

REACTIONS (8)
  - Implant site urticaria [Recovered/Resolved]
  - Device breakage [Recovered/Resolved]
  - Implant site hypersensitivity [Unknown]
  - Drug hypersensitivity [Unknown]
  - Device kink [Recovered/Resolved]
  - Device placement issue [Recovered/Resolved]
  - Device breakage [Recovered/Resolved]
  - Wrong technique in device usage process [Recovered/Resolved]

NARRATIVE: CASE EVENT DATE: 20211217
